FAERS Safety Report 12185198 (Version 1)
Quarter: 2016Q1

REPORT INFORMATION
  Report Type: Spontaneous
  Country: GB (occurrence: GB)
  Receive Date: 20160316
  Receipt Date: 20160316
  Transmission Date: 20160526
  Serious: Yes (Other)
  Sender: FDA-Public Use
  Company Number: GB-DEP_13815_2016

PATIENT
  Age: 60 Year
  Sex: Male
  Weight: 76.2 kg

DRUGS (4)
  1. FLUOXETINE HYDROCHLORIDE (FLUOXETINE HYDROCHLORIDE) [Suspect]
     Active Substance: FLUOXETINE HYDROCHLORIDE
     Indication: DEPRESSION
     Dosage: 40 MG, UNK
     Route: 048
  2. ANTIBIOTICS [Concomitant]
     Active Substance: UNSPECIFIED INGREDIENT
     Dosage: DF
  3. TAPENTADOL (TAPENTADOL) [Suspect]
     Active Substance: TAPENTADOL
     Indication: BACK PAIN
     Dosage: 50 MG, UNK
     Route: 048
     Dates: start: 20160218, end: 20160218
  4. GABAPENTIN. [Concomitant]
     Active Substance: GABAPENTIN
     Dosage: DF

REACTIONS (5)
  - Blood pressure decreased [Unknown]
  - Sinus tachycardia [Unknown]
  - Chills [Unknown]
  - Nausea [Unknown]
  - Serotonin syndrome [Recovered/Resolved]

NARRATIVE: CASE EVENT DATE: 20160218
